FAERS Safety Report 6242170-9 (Version None)
Quarter: 2009Q2

REPORT INFORMATION
  Report Type: 
  Country: None (occurrence: None)
  Receive Date: 20090624
  Receipt Date: 20090615
  Transmission Date: 20091009
  Serious: Yes (Hospitalization, Other)
  Sender: FDA-Public Use
  Company Number: US-BAYER-US-2007-042875

PATIENT
  Age: 38 Year
  Sex: Female
  Weight: 59 kg

DRUGS (7)
  1. BETASERON [Suspect]
     Indication: RELAPSING-REMITTING MULTIPLE SCLEROSIS
     Dosage: TOTAL DAILY DOSE: 8 MIU
     Route: 058
     Dates: start: 20020805, end: 20070704
  2. BETASERON [Suspect]
     Dosage: TOTAL DAILY DOSE: 8 MIU
     Route: 058
     Dates: start: 20070906
  3. MINOCYCLINE HCL [Suspect]
     Indication: RASH
  4. TYLENOL (CAPLET) [Suspect]
  5. SYNTHROID [Concomitant]
  6. MICROGESTIN 1.5/30 [Concomitant]
  7. BACLOFEN [Concomitant]

REACTIONS (17)
  - ANXIETY [None]
  - DEBRIDEMENT [None]
  - DRY SKIN [None]
  - HAEMOLYTIC URAEMIC SYNDROME [None]
  - INFLUENZA LIKE ILLNESS [None]
  - INJECTION SITE ERYTHEMA [None]
  - INJECTION SITE EXFOLIATION [None]
  - INJECTION SITE PAIN [None]
  - INJECTION SITE REACTION [None]
  - INJECTION SITE ULCER [None]
  - LIVER DISORDER [None]
  - LIVER FUNCTION TEST ABNORMAL [None]
  - MALAISE [None]
  - NERVE INJURY [None]
  - PLATELET COUNT DECREASED [None]
  - RENAL DISORDER [None]
  - SKIN EXFOLIATION [None]
